FAERS Safety Report 11664263 (Version 2)
Quarter: 2015Q4

REPORT INFORMATION
  Report Type: Report from Study
  Country: US (occurrence: US)
  Receive Date: 20151027
  Receipt Date: 20151029
  Transmission Date: 20160304
  Serious: No
  Sender: FDA-Public Use
  Company Number: PHHY2012US128147

PATIENT
  Age: 8 Year
  Sex: Male

DRUGS (1)
  1. EXJADE [Suspect]
     Active Substance: DEFERASIROX
     Indication: HAEMOSIDEROSIS
     Dosage: 750 OT
     Route: 048
     Dates: start: 20120508

REACTIONS (2)
  - Thrombosis [Recovered/Resolved]
  - Localised infection [Recovered/Resolved]

NARRATIVE: CASE EVENT DATE: 20120907
